FAERS Safety Report 13058095 (Version 2)
Quarter: 2017Q1

REPORT INFORMATION
  Report Type: Report from Study
  Country: US (occurrence: US)
  Receive Date: 20161223
  Receipt Date: 20170118
  Transmission Date: 20170428
  Serious: Yes (Death, Other)
  Sender: FDA-Public Use
  Company Number: PHEH2016US033482

PATIENT
  Sex: Male

DRUGS (1)
  1. VOTRIENT [Suspect]
     Active Substance: PAZOPANIB HYDROCHLORIDE
     Indication: NEUROENDOCRINE CARCINOMA OF THE SKIN
     Dosage: UNK
     Route: 065
     Dates: start: 20150915

REACTIONS (8)
  - Neuroendocrine carcinoma of the skin [Fatal]
  - Loss of consciousness [Unknown]
  - Mental status changes [Unknown]
  - Product use issue [Unknown]
  - Malignant neoplasm progression [Fatal]
  - Brain herniation [Unknown]
  - Central nervous system lesion [Unknown]
  - Unresponsive to stimuli [Unknown]
